FAERS Safety Report 4455462-0 (Version None)
Quarter: 2004Q3

REPORT INFORMATION
  Report Type: 
  Country: None (occurrence: None)
  Receive Date: 20040917
  Receipt Date: 20040831
  Transmission Date: 20050211
  Serious: Yes (Hospitalization)
  Sender: FDA-Public Use
  Company Number: JP_040904367

PATIENT
  Age: 63 Year
  Sex: Female
  Weight: 42 kg

DRUGS (7)
  1. ZYPREXA [Suspect]
     Indication: SCHIZOPHRENIA
     Dosage: 10 MG DAY
     Dates: start: 20031224
  2. HALOPERIDOL [Concomitant]
  3. LEVOMEPROMAZINE [Concomitant]
  4. AKINETON [Concomitant]
  5. BIBITTOACE (FLUNITRAZEPAM) [Concomitant]
  6. ALOSENN [Concomitant]
  7. SENNOSIDE A [Concomitant]

REACTIONS (7)
  - ABNORMAL BEHAVIOUR [None]
  - AGGRESSION [None]
  - EXCITABILITY [None]
  - HAEMORRHAGE [None]
  - REFUSAL OF TREATMENT BY PATIENT [None]
  - SCRATCH [None]
  - SELF MUTILATION [None]
